FAERS Safety Report 7997196-1 (Version None)
Quarter: 2011Q4

REPORT INFORMATION
  Report Type: 
  Country: None (occurrence: None)
  Receive Date: 20111221
  Receipt Date: 20111212
  Transmission Date: 20120403
  Serious: Yes (Other)
  Sender: FDA-Public Use
  Company Number: PHHY2011JP104868

PATIENT
  Age: 62 Year
  Sex: Female

DRUGS (1)
  1. ZOMETA [Suspect]
     Indication: METASTASES TO BONE
     Route: 041

REACTIONS (5)
  - EXPOSED BONE IN JAW [None]
  - PRIMARY SEQUESTRUM [None]
  - PAIN IN JAW [None]
  - OSTEOMYELITIS [None]
  - OSTEONECROSIS OF JAW [None]
